FAERS Safety Report 11910052 (Version 1)
Quarter: 2016Q1

REPORT INFORMATION
  Report Type: Report from Study
  Country: BR (occurrence: BR)
  Receive Date: 20160112
  Receipt Date: 20160112
  Transmission Date: 20160526
  Serious: Yes (Hospitalization, Other)
  Sender: FDA-Public Use
  Company Number: PHHY2016BR001897

PATIENT
  Sex: Male
  Weight: 82 kg

DRUGS (1)
  1. FORASEQ [Suspect]
     Active Substance: BUDESONIDE\FORMOTEROL FUMARATE
     Indication: EMPHYSEMA
     Dosage: 1 DF, BID (IN THE MORNING AND AT NIGHT)
     Route: 065

REACTIONS (7)
  - Lung disorder [Unknown]
  - Neoplasm malignant [Unknown]
  - Dyspnoea [Unknown]
  - Pneumonia [Unknown]
  - Weight decreased [Unknown]
  - Pleural effusion [Unknown]
  - Eating disorder [Unknown]
